FAERS Safety Report 21253284 (Version 1)
Quarter: 2022Q3

REPORT INFORMATION
  Report Type: Spontaneous
  Country: US (occurrence: None)
  Receive Date: 20220824
  Receipt Date: 20220824
  Transmission Date: 20221027
  Serious: No
  Sender: FDA-Public Use
  Company Number: None

PATIENT
  Sex: Female

DRUGS (1)
  1. ADO-TRASTUZUMAB EMTANSINE [Suspect]
     Active Substance: ADO-TRASTUZUMAB EMTANSINE
     Dates: end: 20220330

REACTIONS (3)
  - Neutropenia [None]
  - Toxicity to various agents [None]
  - Therapy interrupted [None]

NARRATIVE: CASE EVENT DATE: 20220509
